FAERS Safety Report 15758991 (Version 1)
Quarter: 2018Q4

REPORT INFORMATION
  Report Type: Spontaneous
  Country: RU (occurrence: RU)
  Receive Date: 20181226
  Receipt Date: 20181226
  Transmission Date: 20190205
  Serious: Yes (Other)
  Sender: FDA-Public Use
  Company Number: RU-ROCHE-2235157

PATIENT
  Age: 81 Year
  Sex: Female

DRUGS (2)
  1. GAZYVA [Suspect]
     Active Substance: OBINUTUZUMAB
     Indication: CHRONIC LYMPHOCYTIC LEUKAEMIA
     Dosage: IN DAY 1 AND 5
     Route: 042
  2. LEUKERAN [Suspect]
     Active Substance: CHLORAMBUCIL
     Indication: CHRONIC LYMPHOCYTIC LEUKAEMIA
     Dosage: IN DAY 1 AND 5
     Route: 048

REACTIONS (5)
  - Thrombocytopenia [Unknown]
  - Intentional product use issue [Unknown]
  - Off label use [Unknown]
  - Urinary tract infection [Unknown]
  - Infusion site reaction [Unknown]
